FAERS Safety Report 11182794 (Version 1)
Quarter: 2015Q2

REPORT INFORMATION
  Report Type: Spontaneous
  Country: BR (occurrence: BR)
  Receive Date: 20150611
  Receipt Date: 20150611
  Transmission Date: 20150821
  Serious: Yes (Hospitalization, Other)
  Sender: FDA-Public Use
  Company Number: BR-JNJFOC-20150601711

PATIENT
  Age: 15 Year
  Sex: Male
  Weight: 48 kg

DRUGS (4)
  1. REMICADE [Suspect]
     Active Substance: INFLIXIMAB
     Indication: CROHN^S DISEASE
     Dosage: 1 AMPOULE
     Route: 042
  2. REMICADE [Suspect]
     Active Substance: INFLIXIMAB
     Indication: CROHN^S DISEASE
     Dosage: 13 OR 18-MAR-2015
     Route: 042
     Dates: start: 201503
  3. REMICADE [Suspect]
     Active Substance: INFLIXIMAB
     Indication: CROHN^S DISEASE
     Dosage: 1 AMPOULE
     Route: 042
     Dates: start: 20131211
  4. IMURAN [Concomitant]
     Active Substance: AZATHIOPRINE
     Dosage: 2 TABLETS
     Route: 065

REACTIONS (12)
  - Pancreatitis [Recovered/Resolved]
  - Hypersensitivity [Not Recovered/Not Resolved]
  - Abdominal pain [Unknown]
  - Intestinal haemorrhage [Not Recovered/Not Resolved]
  - Dehydration [Not Recovered/Not Resolved]
  - Drug dose omission [Not Recovered/Not Resolved]
  - Incorrect dose administered [Unknown]
  - Diarrhoea [Not Recovered/Not Resolved]
  - Epistaxis [Not Recovered/Not Resolved]
  - Dyspepsia [Not Recovered/Not Resolved]
  - Crohn^s disease [Recovered/Resolved]
  - Off label use [Not Recovered/Not Resolved]

NARRATIVE: CASE EVENT DATE: 201404
